FAERS Safety Report 24050810 (Version 2)
Quarter: 2025Q2

REPORT INFORMATION
  Report Type: Report from Study
  Country: CA (occurrence: CA)
  Receive Date: 20240704
  Receipt Date: 20250409
  Transmission Date: 20250717
  Serious: Yes (Other)
  Sender: CSL BEHRING
  Company Number: CA-BEH-2024174828

PATIENT
  Age: 47 Year
  Sex: Male

DRUGS (4)
  1. BERINERT [Suspect]
     Active Substance: HUMAN C1-ESTERASE INHIBITOR
     Indication: Hereditary angioedema
     Dosage: 3000 IU, QOW
     Route: 042
     Dates: start: 20141117
  2. BERINERT [Suspect]
     Active Substance: HUMAN C1-ESTERASE INHIBITOR
     Indication: Hereditary angioedema
     Dosage: 3000 IU, QOW
     Route: 042
     Dates: start: 20141117
  3. BERINERT [Suspect]
     Active Substance: HUMAN C1-ESTERASE INHIBITOR
     Indication: Prophylaxis
  4. BERINERT [Suspect]
     Active Substance: HUMAN C1-ESTERASE INHIBITOR
     Indication: Prophylaxis

REACTIONS (4)
  - Heart valve replacement [Unknown]
  - Injection site pain [Unknown]
  - Product use issue [Unknown]
  - Off label use [Unknown]

NARRATIVE: CASE EVENT DATE: 20220101
